FAERS Safety Report 4501429-3 (Version None)
Quarter: 2004Q4

REPORT INFORMATION
  Report Type: 
  Country: None (occurrence: None)
  Receive Date: 20041115
  Receipt Date: 20041105
  Transmission Date: 20050328
  Serious: Yes (Other)
  Sender: FDA-Public Use
  Company Number: US-MERCK-0411USA00976

PATIENT
  Age: 70 Year
  Sex: Female

DRUGS (12)
  1. ZOCOR [Suspect]
     Indication: BLOOD CHOLESTEROL INCREASED
     Route: 048
     Dates: start: 20030101
  2. PLAVIX [Concomitant]
     Route: 065
  3. AVANDIA [Concomitant]
     Route: 065
  4. ARIMIDEX [Concomitant]
     Route: 065
  5. LASIX [Concomitant]
     Route: 065
  6. GLYBURIDE [Concomitant]
     Route: 065
  7. LOPRESSOR [Concomitant]
     Route: 065
  8. LISINOPRIL [Concomitant]
     Route: 065
  9. HYDROCHLOROTHIAZIDE AND TRIAMTERENE [Concomitant]
     Route: 065
  10. NITRO-BID [Concomitant]
     Route: 065
  11. ATROVENT [Concomitant]
     Route: 065
  12. EPOGEN [Concomitant]
     Route: 065

REACTIONS (2)
  - MUSCLE CRAMP [None]
  - MYOCARDIAL INFARCTION [None]
